FAERS Safety Report 9550853 (Version 2)
Quarter: 2020Q3

REPORT INFORMATION
  Report Type: Report from Study
  Country: US (occurrence: US)
  Receive Date: 20130924
  Receipt Date: 20200916
  Transmission Date: 20201103
  Serious: No
  Sender: FDA-Public Use
  Company Number: US-SANOFI-AVENTIS-2013SA059732

PATIENT
  Age: 64 Year
  Sex: Female
  Weight: 88.5 kg

DRUGS (9)
  1. TERIFLUNOMIDE. [Suspect]
     Active Substance: TERIFLUNOMIDE
     Indication: MULTIPLE SCLEROSIS
     Dosage: 14 MG,QD
     Route: 048
     Dates: start: 20130415, end: 2013
  2. CALCIUM [Concomitant]
     Active Substance: CALCIUM
     Dosage: 3 DF,QD
  3. CARBAMAZEPINE. [Suspect]
     Active Substance: CARBAMAZEPINE
     Indication: TRIGEMINAL NEURALGIA
     Dosage: UNK
  4. OXYMETAZOLINE HYDROCHLORIDE. [Concomitant]
     Active Substance: OXYMETAZOLINE HYDROCHLORIDE
     Indication: ARTHRITIS
     Dosage: UNK UNK,PRN
  5. ERGOCALCIFEROL. [Concomitant]
     Active Substance: ERGOCALCIFEROL
     Dosage: UNK UNK,QD
  6. TERIFLUNOMIDE. [Suspect]
     Active Substance: TERIFLUNOMIDE
     Dosage: 14 MG,QD
     Route: 048
     Dates: start: 20130507
  7. OXCARBAZEPINE. [Suspect]
     Active Substance: OXCARBAZEPINE
     Indication: TRIGEMINAL NEURALGIA
  8. FOSAMAX [Concomitant]
     Active Substance: ALENDRONATE SODIUM
     Dosage: 10 MG,QW
  9. METOPROLOL. [Concomitant]
     Active Substance: METOPROLOL
     Indication: HYPERTENSION
     Dosage: 50 MG,UNK
     Dates: start: 20100901

REACTIONS (24)
  - Muscle strain [Unknown]
  - Muscular weakness [Recovering/Resolving]
  - Hepatic enzyme increased [Not Recovered/Not Resolved]
  - Product dose omission issue [Unknown]
  - Rhinorrhoea [Not Recovered/Not Resolved]
  - Blood cholesterol increased [Recovering/Resolving]
  - Neuralgia [Unknown]
  - Vomiting [Unknown]
  - Depressed mood [Unknown]
  - Diarrhoea [Unknown]
  - Hypoaesthesia [Recovering/Resolving]
  - Burning sensation [Recovering/Resolving]
  - Musculoskeletal disorder [Recovered/Resolved]
  - Limb discomfort [Recovered/Resolved]
  - Crying [Unknown]
  - Trigeminal neuralgia [Not Recovered/Not Resolved]
  - Pain [Unknown]
  - Condition aggravated [Recovering/Resolving]
  - Paraesthesia [Unknown]
  - Alopecia [Recovering/Resolving]
  - Fall [Recovered/Resolved]
  - Hypertension [Recovered/Resolved]
  - Nasopharyngitis [Not Recovered/Not Resolved]
  - Throat clearing [Unknown]

NARRATIVE: CASE EVENT DATE: 201312
